FAERS Safety Report 18400830 (Version 3)
Quarter: 2020Q4

REPORT INFORMATION
  Report Type: Report from Study
  Country: BR (occurrence: BR)
  Receive Date: 20201019
  Receipt Date: 20201109
  Transmission Date: 20210114
  Serious: Yes (Other)
  Sender: FDA-Public Use
  Company Number: NVSC2020BR278987

PATIENT
  Sex: Female
  Weight: 72 kg

DRUGS (4)
  1. DIOVAN [Suspect]
     Active Substance: VALSARTAN
     Indication: HYPERTENSION
     Dosage: 320 MG (APPROX. 20 YEARS AGO)
     Route: 048
  2. PURAN [Concomitant]
     Active Substance: LEVOTHYROXINE SODIUM
     Indication: THYROID DISORDER
     Dosage: 175 MG, QD (MORE THAN 20 YEARS AGO)
     Route: 048
  3. PANTONAX [Concomitant]
     Indication: EYE ALLERGY
     Dosage: 1 DF, PRN
     Route: 047
     Dates: start: 20201004
  4. GLIFAGE [Concomitant]
     Active Substance: METFORMIN HYDROCHLORIDE
     Indication: DIABETES MELLITUS
     Dosage: 500 MG, BID (MORE THAN 20 YEARS AGO)
     Route: 048

REACTIONS (1)
  - Cataract [Recovered/Resolved]
